FAERS Safety Report 8488717-3 (Version None)
Quarter: 2012Q3

REPORT INFORMATION
  Report Type: 
  Country: None (occurrence: None)
  Receive Date: 20120705
  Receipt Date: 20120702
  Transmission Date: 20120928
  Serious: Yes (Death)
  Sender: FDA-Public Use
  Company Number: GB-ROCHE-1074201

PATIENT
  Age: 44 Year
  Sex: Female

DRUGS (3)
  1. PACLITAXEL [Concomitant]
     Indication: BREAST CANCER METASTATIC
     Route: 042
     Dates: start: 20111007, end: 20120131
  2. AVASTIN [Suspect]
     Indication: BREAST CANCER METASTATIC
     Route: 042
     Dates: start: 20111129, end: 20120131
  3. ZOLEDRONOC ACID [Concomitant]
     Indication: BREAST CANCER
     Route: 042
     Dates: start: 20080717, end: 20120131

REACTIONS (1)
  - HEPATIC FAILURE [None]
